FAERS Safety Report 5770331-1 (Version None)
Quarter: 2008Q2

REPORT INFORMATION
  Report Type: 
  Country: None (occurrence: None)
  Receive Date: 20080613
  Receipt Date: 20080424
  Transmission Date: 20081010
  Serious: No
  Sender: FDA-Public Use
  Company Number: US-ABBOTT-08P-163-0449072-00

PATIENT
  Sex: Female
  Weight: 86.26 kg

DRUGS (3)
  1. HUMIRA [Suspect]
     Indication: CROHN'S DISEASE
     Route: 058
     Dates: start: 20080423, end: 20080423
  2. HUMIRA [Suspect]
     Route: 058
     Dates: start: 20080422, end: 20080422
  3. METHOTREXATE [Concomitant]
     Indication: CROHN'S DISEASE
     Route: 048
     Dates: start: 20080101

REACTIONS (1)
  - ACCIDENTAL EXPOSURE [None]
